FAERS Safety Report 7792418-4 (Version None)
Quarter: 2011Q4

REPORT INFORMATION
  Report Type: 
  Country: None (occurrence: None)
  Receive Date: 20111003
  Receipt Date: 20110926
  Transmission Date: 20120403
  Serious: Yes (Other)
  Sender: FDA-Public Use
  Company Number: US-PFIZER INC-2011205175

PATIENT
  Sex: Female

DRUGS (32)
  1. DILANTIN [Suspect]
     Indication: CONVULSION
     Dosage: 50 MG, UNK
  2. ERGOCALCIFEROL [Concomitant]
     Dosage: 32000 IU, WEEKLY
  3. MELATONIN [Concomitant]
     Dosage: 3 MG, 1X/DAY
  4. TOPAMAX [Concomitant]
     Dosage: 100 MG, 1X/DAY
  5. DILANTIN [Suspect]
     Dosage: 100 MG, 3X/DAY
     Dates: start: 20110826
  6. CLONAZEPAM [Concomitant]
     Dosage: 0.5MG DAILY FOR 3 DAYS THEN 0.25 MG DAILY FOR 2 DAYS
  7. SIMETHICONE [Concomitant]
     Dosage: 40 MG, 4X/DAY
  8. FLUTICASONE PROPIONATE [Concomitant]
     Dosage: 1 SQUIRT TO EACH NOSTRIL, 2X/DAY
     Route: 045
  9. DIAZEPAM [Concomitant]
     Indication: CONVULSION
     Dosage: 10 MG, AS NEEDED
     Route: 054
  10. IBUPROFEN [Concomitant]
     Indication: BODY TEMPERATURE INCREASED
     Dosage: 300 MG, EVERY 6 HOURS AS NEEDED
     Route: 054
  11. CARBAMIDE PEROXIDE [Concomitant]
     Indication: CERUMEN IMPACTION
     Dosage: 1 DROP EACH EAR FOR 3 DAYS, THEN IRRIGATE MONTHLY
     Route: 001
     Dates: start: 20110817
  12. CLORAZEPATE DIPOTASSIUM [Concomitant]
     Dosage: 7.5 MG, 1X/DAY
  13. BACITRACIN [Concomitant]
     Indication: ERYTHEMA
     Dosage: 2 TIMES A DAY
     Route: 061
     Dates: start: 20110916, end: 20110921
  14. DILANTIN [Suspect]
     Dosage: 75 MG, 1X/DAY
     Dates: start: 20031008
  15. CLONAZEPAM [Concomitant]
     Indication: CONVULSION
     Dosage: 0.5 MG, AS NEEDED
  16. KEPPRA [Concomitant]
     Dosage: 1 DF, 2X/DAY
  17. TOPAMAX [Concomitant]
     Dosage: 200 MG, 1X/DAY
  18. GABAPENTIN [Concomitant]
     Dosage: 1 ML, 1X/DAY VIA G-TUBE
  19. CLORAZEPATE DIPOTASSIUM [Concomitant]
     Dosage: 5.62 MG, 1X/DAY
  20. NASAL SALINE [Concomitant]
     Indication: NASAL DRYNESS
     Dosage: 1 DF, 4X/DAY AND PRN FOR NASAL DRYNESS
     Route: 045
  21. FEXOFENADINE [Concomitant]
     Dosage: 30 MG, 2X/DAY
     Dates: start: 20110111
  22. POLYETHYLENE GLYCOL [Concomitant]
     Dosage: 17 G, 2X/DAY
  23. ACETAMINOPHEN [Concomitant]
     Indication: BODY TEMPERATURE INCREASED
     Dosage: 325 MG, (EVERY 4 HOURS) AS NEEDED VIA G-TUBE
  24. ACETAMINOPHEN [Concomitant]
     Indication: TEETHING
  25. MULTI-VITAMINS [Concomitant]
     Dosage: 1 ML, 1X/DAY
  26. IBUPROFEN [Concomitant]
     Indication: TEETHING
  27. GLYCERIN [Concomitant]
     Dosage: 1 DF, 2X/DAY
     Route: 054
  28. DILANTIN [Suspect]
     Dosage: 75 MG, 2X/DAY
     Dates: end: 20110825
  29. CALCIUM CITRATE [Concomitant]
     Indication: MINERAL SUPPLEMENTATION
     Dosage: 950 MG, 2X/DAY
  30. SODIUM CHLORIDE [Concomitant]
     Dosage: AS NEEDED
     Route: 061
  31. LANSOPRAZOLE [Concomitant]
     Dosage: 15 MG, UNK
  32. ORA-JEL [Concomitant]
     Indication: TEETHING
     Dosage: EVERY 4 HOURS
     Dates: start: 20110719

REACTIONS (2)
  - ANTICONVULSANT DRUG LEVEL DECREASED [None]
  - CONVULSION [None]
